FAERS Safety Report 10305942 (Version 1)
Quarter: 2014Q3

REPORT INFORMATION
  Report Type: Spontaneous
  Country: US (occurrence: None)
  Receive Date: 20140714
  Receipt Date: 20140714
  Transmission Date: 20150326
  Serious: Yes (Hospitalization)
  Sender: FDA-Public Use
  Company Number: None

PATIENT
  Age: 59 Year
  Sex: Male
  Weight: 99 kg

DRUGS (1)
  1. IDARUBICIN [Suspect]
     Active Substance: IDARUBICIN
     Dates: end: 20140620

REACTIONS (8)
  - Ejection fraction decreased [None]
  - Hypoxia [None]
  - Lung infiltration [None]
  - Enterococcal infection [None]
  - Respiratory distress [None]
  - Febrile neutropenia [None]
  - Escherichia infection [None]
  - Bacteraemia [None]

NARRATIVE: CASE EVENT DATE: 20140630
